FAERS Safety Report 9815620 (Version 1)
Quarter: 2014Q1

REPORT INFORMATION
  Report Type: Spontaneous
  Country: IE (occurrence: IE)
  Receive Date: 20140114
  Receipt Date: 20140114
  Transmission Date: 20141002
  Serious: Yes (Other)
  Sender: FDA-Public Use
  Company Number: IE-ELI_LILLY_AND_COMPANY-IE201401002013

PATIENT
  Age: 30 Year
  Sex: Female

DRUGS (3)
  1. PROZAC [Suspect]
     Indication: DEPRESSED MOOD
     Dosage: 20 MG, QD
     Route: 048
     Dates: start: 20120819
  2. RISPERDAL [Suspect]
     Indication: PSYCHOTIC DISORDER
     Dosage: 3 MG, QD
     Route: 048
     Dates: start: 20130720
  3. RISPERDAL [Suspect]
     Dosage: 1 MG, UNK
     Route: 048
     Dates: start: 20131209

REACTIONS (1)
  - Autoimmune thyroiditis [Recovering/Resolving]
